FAERS Safety Report 8617495 (Version 2)
Quarter: 2016Q3

REPORT INFORMATION
  Report Type: Report from Study
  Country: US (occurrence: US)
  Receive Date: 20120615
  Receipt Date: 20160909
  Transmission Date: 20161109
  Serious: Yes (Death, Hospitalization, Other)
  Sender: FDA-Public Use
  Company Number: US-ROCHE-1074892

PATIENT
  Age: 8 Year
  Sex: Male
  Weight: 22.4 kg

DRUGS (3)
  1. BEVACIZUMAB [Suspect]
     Active Substance: BEVACIZUMAB
     Indication: MEDULLOBLASTOMA
     Dosage: 10 MG/M2; OVER 30 TO 90 MINUTES ON DAYS 1 AND 15
     Route: 042
     Dates: start: 20120416
  2. TEMOZOLOMIDE. [Suspect]
     Active Substance: TEMOZOLOMIDE
     Indication: MEDULLOBLASTOMA
     Dosage: 150 MG/M2 OR 5 MG/KG (FOR PATIENTS WITH BSA LESS THAN 0.5 M2) ON DAYS 1-5
     Route: 048
     Dates: start: 20120416
  3. IRINOTECAN [Suspect]
     Active Substance: IRINOTECAN
     Indication: MEDULLOBLASTOMA
     Dosage: 50 MG/M2; OVER 90 MINUTES ON DAYS 1 TO 5
     Route: 042
     Dates: start: 20120416

REACTIONS (10)
  - Febrile neutropenia [Unknown]
  - Lymphocyte count decreased [Unknown]
  - Death [Fatal]
  - Rash maculo-papular [Recovering/Resolving]
  - Dehydration [Unknown]
  - Platelet count decreased [Unknown]
  - Hypokalaemia [Unknown]
  - Neutrophil count decreased [Unknown]
  - Anaemia [Unknown]
  - White blood cell count decreased [Unknown]

NARRATIVE: CASE EVENT DATE: 20120420
